FAERS Safety Report 20145503 (Version 2)
Quarter: 2021Q4

REPORT INFORMATION
  Report Type: Spontaneous
  Country: HU (occurrence: HU)
  Receive Date: 20211203
  Receipt Date: 20211227
  Transmission Date: 20220304
  Serious: Yes (Hospitalization, Other)
  Sender: FDA-Public Use
  Company Number: HU-002147023-NVSC2021HU071285

PATIENT
  Age: 2 Year
  Sex: Male
  Weight: 9.6 kg

DRUGS (19)
  1. METHYLPREDNISOLONE SODIUM SUCCINATE [Suspect]
     Active Substance: METHYLPREDNISOLONE SODIUM SUCCINATE
     Indication: Aspartate aminotransferase increased
     Dosage: UNK
     Route: 042
     Dates: start: 202103
  2. METHYLPREDNISOLONE SODIUM SUCCINATE [Suspect]
     Active Substance: METHYLPREDNISOLONE SODIUM SUCCINATE
     Dosage: 20 MG/KG, DAILY
     Route: 042
     Dates: start: 20210324
  3. METHYLPREDNISOLONE SODIUM SUCCINATE [Suspect]
     Active Substance: METHYLPREDNISOLONE SODIUM SUCCINATE
     Dosage: UNK
     Route: 042
     Dates: start: 202103
  4. METHYLPREDNISOLONE SODIUM SUCCINATE [Suspect]
     Active Substance: METHYLPREDNISOLONE SODIUM SUCCINATE
     Dosage: UNK
     Route: 065
     Dates: start: 202103
  5. PREDNISOLONE [Suspect]
     Active Substance: PREDNISOLONE
     Indication: Aspartate aminotransferase increased
     Dosage: 1 MG/KG, QD
     Route: 054
     Dates: end: 202103
  6. PREDNISOLONE [Suspect]
     Active Substance: PREDNISOLONE
     Dosage: UNK
     Route: 054
     Dates: start: 2021
  7. PREDNISOLONE [Suspect]
     Active Substance: PREDNISOLONE
     Dosage: UNK
     Route: 054
     Dates: start: 202105
  8. PREDNISOLONE [Suspect]
     Active Substance: PREDNISOLONE
     Dosage: UNK
     Route: 054
     Dates: start: 2021
  9. PREDNISOLONE [Suspect]
     Active Substance: PREDNISOLONE
     Dosage: UNK
     Route: 054
     Dates: start: 2021
  10. PREDNISOLONE [Suspect]
     Active Substance: PREDNISOLONE
     Dosage: UNK
     Route: 054
     Dates: start: 2021
  11. PREDNISOLONE [Suspect]
     Active Substance: PREDNISOLONE
     Dosage: 2 MG/KG, QD
     Route: 054
     Dates: start: 202103, end: 20210324
  12. PREDNISOLONE [Suspect]
     Active Substance: PREDNISOLONE
     Route: 054
     Dates: start: 20210201
  13. PREDNISOLONE [Suspect]
     Active Substance: PREDNISOLONE
     Route: 054
     Dates: start: 20210514
  14. ZOLGENSMA [Suspect]
     Active Substance: ONASEMNOGENE ABEPARVOVEC-XIOI
     Indication: Spinal muscular atrophy
     Dosage: 55.3 MG, ONCE/SINGLE
     Dates: start: 20210202
  15. ZOLGENSMA [Suspect]
     Active Substance: ONASEMNOGENE ABEPARVOVEC-XIOI
     Dosage: UNK
     Route: 042
     Dates: start: 20210202, end: 20210202
  16. ZOLGENSMA [Suspect]
     Active Substance: ONASEMNOGENE ABEPARVOVEC-XIOI
     Dosage: UNK
     Route: 042
     Dates: start: 20210202, end: 20210202
  17. VIGANTOLVIT [Concomitant]
     Indication: Product used for unknown indication
     Dosage: 2 DRP, QD
     Dates: start: 20210201
  18. NUSINERSEN [Concomitant]
     Active Substance: NUSINERSEN
     Indication: Product used for unknown indication
     Dosage: UNK
     Dates: start: 20190319
  19. FAMOTIDINE [Concomitant]
     Active Substance: FAMOTIDINE
     Indication: Gastrointestinal disorder prophylaxis
     Dosage: UNK
     Route: 048
     Dates: start: 20210201

REACTIONS (19)
  - Lethargy [Unknown]
  - Decreased appetite [Unknown]
  - Alanine aminotransferase increased [Recovering/Resolving]
  - Hepatic enzyme increased [Recovering/Resolving]
  - Aspartate aminotransferase increased [Recovering/Resolving]
  - Thrombocytopenia [Recovered/Resolved]
  - Thrombocytopenia [Not Recovered/Not Resolved]
  - Abdominal pain upper [Unknown]
  - Urobilinogen urine increased [Unknown]
  - Blood creatinine decreased [Unknown]
  - Blood creatine phosphokinase MB abnormal [Recovered/Resolved]
  - Protein urine present [Unknown]
  - Bowel movement irregularity [Unknown]
  - Troponin increased [Unknown]
  - Fatigue [Unknown]
  - Blood creatine phosphokinase MB abnormal [Unknown]
  - Glycosuria [Unknown]
  - Blood lactate dehydrogenase increased [Unknown]
  - Platelet count decreased [Recovered/Resolved]

NARRATIVE: CASE EVENT DATE: 20210101
